FAERS Safety Report 8164064-4 (Version None)
Quarter: 2012Q1

REPORT INFORMATION
  Report Type: 
  Country: None (occurrence: None)
  Receive Date: 20120224
  Receipt Date: 20120214
  Transmission Date: 20120608
  Serious: Yes (Hospitalization, Other)
  Sender: FDA-Public Use
  Company Number: PHHY2012JP006854

PATIENT
  Age: 64 Year
  Sex: Male
  Weight: 47 kg

DRUGS (2)
  1. CASODEX [Concomitant]
     Dosage: 80 MG, DAILY
     Route: 048
  2. ZOMETA [Suspect]
     Indication: METASTASES TO BONE
     Dosage: 04 MG, PER ADMINISTRATION
     Route: 041
     Dates: start: 20111115, end: 20120110

REACTIONS (7)
  - WHITE BLOOD CELL COUNT INCREASED [None]
  - C-REACTIVE PROTEIN INCREASED [None]
  - PULMONARY OEDEMA [None]
  - PLEURAL EFFUSION [None]
  - MALAISE [None]
  - RESPIRATORY TRACT INFLAMMATION [None]
  - GENERAL PHYSICAL HEALTH DETERIORATION [None]
